FAERS Safety Report 5835334-7 (Version None)
Quarter: 2008Q3

REPORT INFORMATION
  Report Type: 
  Country: None (occurrence: None)
  Receive Date: 20080806
  Receipt Date: 20080728
  Transmission Date: 20090109
  Serious: Yes (Other)
  Sender: FDA-Public Use
  Company Number: DE-ABBOTT-08P-062-0460649-00

PATIENT
  Sex: Female

DRUGS (5)
  1. ERGENYL CHRONO TABLETS [Suspect]
     Indication: EPILEPSY
     Dosage: 300 MG DAILY
     Dates: start: 20080619
  2. ERGENYL CHRONO TABLETS [Suspect]
     Dosage: 600 MG DAILY
     Dates: start: 20080610, end: 20080618
  3. ERGENYL CHRONO TABLETS [Suspect]
     Dosage: 1X150 MG + 1X 300 MG DAILY
     Dates: start: 20080606, end: 20080609
  4. ERGENYL CHRONO TABLETS [Suspect]
     Dates: start: 20080602, end: 20080605
  5. ERGENYL CHRONO TABLETS [Suspect]
     Dosage: 150MG DAILY
     Dates: start: 20080529, end: 20080601

REACTIONS (4)
  - AGGRESSION [None]
  - PHOTOSENSITIVITY REACTION [None]
  - RESTLESSNESS [None]
  - WEIGHT INCREASED [None]
